FAERS Safety Report 7078222-3 (Version None)
Quarter: 2010Q4

REPORT INFORMATION
  Report Type: 
  Country: None (occurrence: None)
  Receive Date: 20101102
  Receipt Date: 20101021
  Transmission Date: 20110411
  Serious: Yes (Death)
  Sender: FDA-Public Use
  Company Number: US-CELGENEUS-163-20785-10102253

PATIENT
  Sex: Female

DRUGS (6)
  1. THALOMID [Suspect]
     Indication: MULTIPLE MYELOMA
     Route: 048
     Dates: start: 20020901, end: 20020101
  2. THALOMID [Suspect]
     Dosage: 100-200MG
     Route: 048
     Dates: start: 20030101, end: 20060101
  3. THALOMID [Suspect]
     Route: 048
     Dates: start: 20090601, end: 20090101
  4. THALOMID [Suspect]
     Route: 048
     Dates: start: 20100301
  5. THALOMID [Suspect]
     Route: 048
     Dates: start: 20100901
  6. REVLIMID [Concomitant]
     Indication: MULTIPLE MYELOMA
     Route: 048
     Dates: start: 20090601, end: 20090101

REACTIONS (2)
  - DEHYDRATION [None]
  - MALNUTRITION [None]
